FAERS Safety Report 5627706-0 (Version None)
Quarter: 2008Q1

REPORT INFORMATION
  Report Type: 
  Country: None (occurrence: None)
  Receive Date: 20080214
  Receipt Date: 20080214
  Transmission Date: 20080703
  Serious: Yes (Hospitalization)
  Sender: FDA-Public Use
  Company Number: None

PATIENT
  Sex: Male
  Weight: 76 kg

DRUGS (2)
  1. CISPLATIN [Suspect]
     Indication: LARYNGEAL CANCER
     Dosage: 100MG/M2 IV Q 3 WKS
     Route: 042
     Dates: start: 20080121
  2. CETUXIMAB [Suspect]
     Indication: LARYNGEAL CANCER
     Dosage: 250MG/M2 IV
     Route: 042
     Dates: start: 20071106

REACTIONS (3)
  - MUCOSAL INFLAMMATION [None]
  - PAIN [None]
  - VOMITING [None]
